FAERS Safety Report 11579782 (Version 6)
Quarter: 2015Q4

REPORT INFORMATION
  Report Type: Spontaneous
  Country: US (occurrence: US)
  Receive Date: 20150930
  Receipt Date: 20151118
  Transmission Date: 20160304
  Serious: Yes (Hospitalization)
  Sender: FDA-Public Use
  Company Number: US-ACTELION PHARMACEUTICALS US, INC.-A-NJ2015-119776

PATIENT
  Age: 47 Year
  Sex: Female

DRUGS (5)
  1. VELETRI [Suspect]
     Active Substance: EPOPROSTENOL
     Indication: PULMONARY ARTERIAL HYPERTENSION
     Dosage: 47 NG/KG, PER MIN
     Route: 042
     Dates: start: 20140805
  2. TORSEMIDE. [Concomitant]
     Active Substance: TORSEMIDE
  3. FUROSEMIDE. [Concomitant]
     Active Substance: FUROSEMIDE
  4. ADCIRCA [Concomitant]
     Active Substance: TADALAFIL
  5. COUMADIN [Concomitant]
     Active Substance: WARFARIN SODIUM

REACTIONS (13)
  - Fluid retention [Unknown]
  - Pulmonary arterial hypertension [Unknown]
  - Swelling [Unknown]
  - Ascites [Unknown]
  - Dyspnoea [Unknown]
  - Peripheral swelling [Unknown]
  - Chest discomfort [Unknown]
  - Dizziness [Unknown]
  - Dyspepsia [Unknown]
  - Renal impairment [Unknown]
  - Rash pruritic [Unknown]
  - Muscle spasms [Unknown]
  - Oedema [Unknown]
